FAERS Safety Report 17741441 (Version 2)
Quarter: 2021Q1

REPORT INFORMATION
  Report Type: Spontaneous
  Country: US (occurrence: US)
  Receive Date: 20200504
  Receipt Date: 20210316
  Transmission Date: 20210419
  Serious: No
  Sender: FDA-Public Use
  Company Number: US-PFIZER INC-2020177201

PATIENT
  Age: 58 Year
  Sex: Male

DRUGS (1)
  1. PREGABALIN. [Suspect]
     Active Substance: PREGABALIN
     Indication: DIABETIC NEUROPATHY
     Dosage: 25 MG, 1X/DAY [NIGHTLY]
     Route: 048

REACTIONS (4)
  - Off label use [Unknown]
  - Drug ineffective [Unknown]
  - Drug intolerance [Unknown]
  - Hypoaesthesia [Unknown]
